FAERS Safety Report 10945747 (Version 1)
Quarter: 2015Q1

REPORT INFORMATION
  Report Type: Spontaneous
  Country: IT (occurrence: None)
  Receive Date: 20150318
  Receipt Date: 20150318
  Transmission Date: 20150721
  Serious: Yes (Hospitalization, Other)
  Sender: FDA-Public Use
  Company Number: 2014FE00031

PATIENT
  Age: 75 Year
  Sex: Male

DRUGS (3)
  1. OKI (KETOPROFEN LYSINE) [Concomitant]
     Active Substance: KETOPROFEN LYSINE
  2. FIRMAGON [Suspect]
     Active Substance: DEGARELIX ACETATE
     Indication: PROSTATE CANCER
     Route: 058
     Dates: start: 20130901, end: 20131130
  3. SERETIDE (SALMETEROL XINAFOATE) [Concomitant]

REACTIONS (14)
  - Blood creatinine increased [None]
  - Transaminases increased [None]
  - Injection site pain [None]
  - Bronchitis [None]
  - Azotaemia [None]
  - Nasopharyngitis [None]
  - Injection site swelling [None]
  - Injection site erythema [None]
  - Arthralgia [None]
  - Nausea [None]
  - Swelling [None]
  - Erectile dysfunction [None]
  - Spinal pain [None]
  - Hernia [None]

NARRATIVE: CASE EVENT DATE: 20130907
